FAERS Safety Report 11856265 (Version 2)
Quarter: 2016Q1

REPORT INFORMATION
  Report Type: Spontaneous
  Country: JP (occurrence: JP)
  Receive Date: 20151221
  Receipt Date: 20160120
  Transmission Date: 20160526
  Serious: Yes (Hospitalization)
  Sender: FDA-Public Use
  Company Number: JP-GE HEALTHCARE MEDICAL DIAGNOSTICS-MSTR-PR-1512S-0010

PATIENT
  Age: 69 Year
  Sex: Female
  Weight: 37.5 kg

DRUGS (7)
  1. PREGABALIN. [Concomitant]
     Active Substance: PREGABALIN
  2. FENTANYL. [Concomitant]
     Active Substance: FENTANYL
  3. METASTRON [Suspect]
     Active Substance: STRONTIUM CHLORIDE SR-89
     Indication: DIAGNOSTIC PROCEDURE
  4. METASTRON [Suspect]
     Active Substance: STRONTIUM CHLORIDE SR-89
     Indication: CANCER PAIN
     Dosage: 2 MBQ PER KG
     Route: 042
     Dates: start: 20131112, end: 20131112
  5. BETAMETHASONE. [Concomitant]
     Active Substance: BETAMETHASONE
  6. TECHNETIUM TC-99M GENERATOR [Concomitant]
     Active Substance: TECHNETIUM TC-99M
  7. MAGNESIUM OXIDE. [Concomitant]
     Active Substance: MAGNESIUM OXIDE

REACTIONS (1)
  - Thrombocytopenia [Unknown]

NARRATIVE: CASE EVENT DATE: 20140109
